FAERS Safety Report 10816076 (Version 1)
Quarter: 2015Q1

REPORT INFORMATION
  Report Type: Spontaneous
  Country: DE (occurrence: DE)
  Receive Date: 20150218
  Receipt Date: 20150218
  Transmission Date: 20150721
  Serious: Yes (Hospitalization)
  Sender: FDA-Public Use
  Company Number: DE-UCBSA-2015004214

PATIENT
  Age: 12 Year
  Sex: Male
  Weight: 19 kg

DRUGS (4)
  1. KEPPRA [Suspect]
     Active Substance: LEVETIRACETAM
     Indication: PRODUCT USED FOR UNKNOWN INDICATION
     Dosage: 5ML-4ML-5ML , 3X/DAY (TID)
     Route: 048
     Dates: end: 20150205
  2. ORFIRIL [Suspect]
     Active Substance: VALPROIC ACID
     Indication: PRODUCT USED FOR UNKNOWN INDICATION
     Dosage: 7.5 ML, 3X/DAY (TID)
     Route: 048
     Dates: end: 20150205
  3. KEPPRA [Suspect]
     Active Substance: LEVETIRACETAM
     Dosage: 8ML (2X4ML), DOSAGE AT NOON ADMINISTERED TWICE
     Route: 048
     Dates: start: 20150206, end: 20150206
  4. ORFIRIL [Suspect]
     Active Substance: VALPROIC ACID
     Dosage: 15(2X7.5ML) DOSAGE AT NOON ADMINISTERED TWICE
     Route: 048
     Dates: start: 20150206, end: 20150206

REACTIONS (1)
  - Accidental exposure to product [Unknown]

NARRATIVE: CASE EVENT DATE: 20150206
